FAERS Safety Report 7556900-7 (Version None)
Quarter: 2011Q2

REPORT INFORMATION
  Report Type: 
  Country: None (occurrence: None)
  Receive Date: 20110609
  Receipt Date: 20110531
  Transmission Date: 20111010
  Serious: Yes (Other)
  Sender: FDA-Public Use
  Company Number: 2011SP025370

PATIENT
  Age: 62 Year
  Sex: Female
  Weight: 72.5755 kg

DRUGS (2)
  1. NASONEX [Suspect]
     Indication: MULTIPLE ALLERGIES
     Dosage: 1 DF;QD;NAS
     Route: 045
     Dates: start: 20110429, end: 20110430
  2. ALLEGRA [Suspect]
     Indication: MULTIPLE ALLERGIES
     Dosage: QD;PO
     Route: 048
     Dates: start: 20110429, end: 20110430

REACTIONS (3)
  - NASAL DRYNESS [None]
  - VISUAL ACUITY REDUCED [None]
  - DRY EYE [None]
